FAERS Safety Report 11809870 (Version 1)
Quarter: 2015Q4

REPORT INFORMATION
  Report Type: Report from Study
  Country: IT (occurrence: IT)
  Receive Date: 20151208
  Receipt Date: 20151208
  Transmission Date: 20160305
  Serious: Yes (Other)
  Sender: FDA-Public Use
  Company Number: IT-ACCORD-036023

PATIENT
  Age: 75 Year
  Sex: Male

DRUGS (2)
  1. ABRAXANE [Suspect]
     Active Substance: PACLITAXEL
     Indication: PANCREATIC CARCINOMA METASTATIC
     Dosage: ADMINISTERED ON DAY 1, DAY 8 AND DAY 15 OF TREATMENT.
     Route: 042
     Dates: start: 20150901, end: 20151101
  2. GEMCITABINE/GEMCITABINE HYDROCHLORIDE [Suspect]
     Active Substance: GEMCITABINE\GEMCITABINE HYDROCHLORIDE
     Indication: PANCREATIC CARCINOMA METASTATIC
     Dosage: ADMINISTERED ON DAY 1, DAY 8 AND DAY 15 OF TREATMENT
     Route: 042
     Dates: start: 20150901, end: 20151101

REACTIONS (1)
  - Haematotoxicity [Unknown]
